FAERS Safety Report 24096577 (Version 1)
Quarter: 2024Q3

REPORT INFORMATION
  Report Type: Spontaneous
  Country: IL (occurrence: IL)
  Receive Date: 20240716
  Receipt Date: 20240716
  Transmission Date: 20241017
  Serious: Yes (Death, Hospitalization, Other)
  Sender: MERCK
  Company Number: IL-009507513-2407ISR004688

PATIENT
  Age: 63 Year
  Sex: Male

DRUGS (12)
  1. KEYTRUDA [Suspect]
     Active Substance: PEMBROLIZUMAB
     Dosage: 200 MILLIGRAM
  2. BROTIZOLAM [Concomitant]
     Active Substance: BROTIZOLAM
     Dosage: 0.25 MILLIGRAM
  3. CLOZAPINE [Concomitant]
     Active Substance: CLOZAPINE
  4. FLUOROURACIL [Concomitant]
     Active Substance: FLUOROURACIL
     Dosage: 700 MILLIGRAM, BOLUS
  5. FLUOROURACIL [Concomitant]
     Active Substance: FLUOROURACIL
     Dosage: 4000 MG- CONTINUOUS
  6. LEUCOVORIN [Concomitant]
     Active Substance: LEUCOVORIN\LEUCOVORIN CALCIUM
     Dosage: 100 MILLIGRAM
  7. MIRO [MIRTAZAPINE] [Concomitant]
     Dosage: 15 MILLIGRAM
  8. OXALIPLATIN [Concomitant]
     Active Substance: OXALIPLATIN
     Dosage: 150 MILLIGRAM
  9. RODENAL [Concomitant]
  10. SERTRALINE [Concomitant]
     Active Substance: SERTRALINE HYDROCHLORIDE
  11. AMISULPRIDE [Concomitant]
     Active Substance: AMISULPRIDE
     Dosage: 300 MILLIGRAM
  12. ZYPREXA [Concomitant]
     Active Substance: OLANZAPINE
     Dosage: 5 MILLIGRAM

REACTIONS (7)
  - Death [Fatal]
  - Hyperbilirubinaemia [Unknown]
  - Drug-induced liver injury [Unknown]
  - Asthenia [Unknown]
  - Jaundice [Unknown]
  - Renal impairment [Unknown]
  - Liver disorder [Unknown]
